FAERS Safety Report 20062786 (Version 1)
Quarter: 2021Q4

REPORT INFORMATION
  Report Type: Other
  Country: RU (occurrence: None)
  Receive Date: 20211112
  Receipt Date: 20211112
  Transmission Date: 20220303
  Serious: Yes (Other)
  Sender: FDA-Public Use
  Company Number: US-ROCHE-2918329

PATIENT

DRUGS (1)
  1. DORNASE ALFA [Suspect]
     Active Substance: DORNASE ALFA
     Indication: Cystic fibrosis
     Route: 065

REACTIONS (6)
  - Bronchial obstruction [Unknown]
  - Respiratory disorder [Unknown]
  - Cough [Unknown]
  - Dysphonia [Unknown]
  - Skin irritation [Unknown]
  - Conjunctivitis [Unknown]
